FAERS Safety Report 16791862 (Version 2)
Quarter: 2019Q3

REPORT INFORMATION
  Report Type: Spontaneous
  Country: US (occurrence: US)
  Receive Date: 20190910
  Receipt Date: 20190912
  Transmission Date: 20191005
  Serious: Yes (Other)
  Sender: FDA-Public Use
  Company Number: US-PFIZER INC-2019388748

PATIENT
  Sex: Male

DRUGS (1)
  1. XELJANZ [Suspect]
     Active Substance: TOFACITINIB CITRATE
     Dosage: 5 MG, UNK

REACTIONS (6)
  - Diarrhoea haemorrhagic [Unknown]
  - Diarrhoea [Unknown]
  - Blister infected [Unknown]
  - Malaise [Unknown]
  - Pain [Unknown]
  - Blister [Unknown]
